FAERS Safety Report 17110953 (Version 15)
Quarter: 2022Q2

REPORT INFORMATION
  Report Type: Report from Study
  Country: CA (occurrence: CA)
  Receive Date: 20191204
  Receipt Date: 20220428
  Transmission Date: 20220721
  Serious: Yes (Other)
  Sender: FDA-Public Use
  Company Number: PHHY2019CA190608

PATIENT
  Age: 10 Year
  Sex: Female

DRUGS (17)
  1. ILARIS [Suspect]
     Active Substance: CANAKINUMAB
     Indication: Mevalonate kinase deficiency
     Dosage: 75 MG, EVERY 4 WEEKS
     Route: 058
     Dates: start: 20190614
  2. ILARIS [Suspect]
     Active Substance: CANAKINUMAB
     Dosage: 75 OT, EVERY 4 WEEKS
     Route: 058
     Dates: start: 20190712
  3. ILARIS [Suspect]
     Active Substance: CANAKINUMAB
     Dosage: 75 MG, EVERY 4 WEEKS
     Route: 058
     Dates: start: 20190906
  4. ILARIS [Suspect]
     Active Substance: CANAKINUMAB
     Dosage: 75 OT, EVERY 4 WEEKS
     Route: 058
     Dates: start: 20191004
  5. ILARIS [Suspect]
     Active Substance: CANAKINUMAB
     Dosage: UNK
     Route: 065
     Dates: start: 20191101
  6. ILARIS [Suspect]
     Active Substance: CANAKINUMAB
     Dosage: UNK
     Route: 065
     Dates: start: 20191129
  7. ILARIS [Suspect]
     Active Substance: CANAKINUMAB
     Dosage: UNK
     Route: 065
     Dates: start: 20191227
  8. ILARIS [Suspect]
     Active Substance: CANAKINUMAB
     Dosage: UNK
     Route: 058
     Dates: start: 20200124
  9. ILARIS [Suspect]
     Active Substance: CANAKINUMAB
     Dosage: 75 OT, EVERY 4 WEEKS
     Route: 058
     Dates: start: 20200320
  10. ILARIS [Suspect]
     Active Substance: CANAKINUMAB
     Dosage: 75 OT, EVERY 4 WEEKS
     Route: 058
     Dates: start: 20210319
  11. ILARIS [Suspect]
     Active Substance: CANAKINUMAB
     Dosage: 75 MG, EVERY 3 WEEKS
     Route: 058
  12. ILARIS [Suspect]
     Active Substance: CANAKINUMAB
     Dosage: 75 MG, EVERY 3 WEEKS
     Route: 058
     Dates: start: 20190614
  13. ILARIS [Suspect]
     Active Substance: CANAKINUMAB
     Dosage: 75 MG, EVERY 4 WEEKS
     Route: 065
  14. ILARIS [Suspect]
     Active Substance: CANAKINUMAB
     Dosage: 75, EVERY 4 WEEKS
     Route: 058
     Dates: start: 20190114
  15. ILARIS [Suspect]
     Active Substance: CANAKINUMAB
     Dosage: UNK
     Route: 065
     Dates: start: 20220222
  16. ANAKINRA [Concomitant]
     Active Substance: ANAKINRA
     Indication: Product used for unknown indication
     Dosage: UNK UNK, QD
     Route: 065
     Dates: start: 20180111
  17. ANAKINRA [Concomitant]
     Active Substance: ANAKINRA
     Dosage: 50 MG, QD
     Route: 065
     Dates: start: 20180111

REACTIONS (18)
  - Pneumonia [Recovered/Resolved]
  - Mevalonate kinase deficiency [Recovered/Resolved]
  - Rash [Recovered/Resolved]
  - Pyrexia [Recovered/Resolved]
  - Mevalonate kinase deficiency [Unknown]
  - Rash [Unknown]
  - Pyrexia [Unknown]
  - Condition aggravated [Recovered/Resolved]
  - Blood pressure decreased [Unknown]
  - Fatigue [Unknown]
  - Pyrexia [Recovered/Resolved]
  - Stress [Unknown]
  - Dental caries [Unknown]
  - Emotional disorder [Unknown]
  - Oropharyngeal pain [Recovered/Resolved]
  - Nasopharyngitis [Unknown]
  - Nasal congestion [Unknown]
  - Product use issue [Unknown]

NARRATIVE: CASE EVENT DATE: 20190809
